FAERS Safety Report 14747293 (Version 2)
Quarter: 2018Q2

REPORT INFORMATION
  Report Type: Spontaneous
  Country: US (occurrence: US)
  Receive Date: 20180411
  Receipt Date: 20180529
  Transmission Date: 20180711
  Serious: Yes (Death, Hospitalization)
  Sender: FDA-Public Use
  Company Number: US-VIFOR (INTERNATIONAL) INC.-VIT-2016-03500

PATIENT
  Age: 57 Year
  Sex: Female

DRUGS (19)
  1. VELTASSA [Suspect]
     Active Substance: PATIROMER
     Route: 048
     Dates: start: 20160706, end: 201608
  2. MIDODRINE HYDROCHLORIDE. [Concomitant]
     Active Substance: MIDODRINE HYDROCHLORIDE
  3. TOCOPHEROL [Concomitant]
     Active Substance: TOCOPHEROL
  4. RENVELA [Concomitant]
     Active Substance: SEVELAMER CARBONATE
  5. COLACE [Concomitant]
     Active Substance: DOCUSATE SODIUM
  6. SIMVASTATIN. [Concomitant]
     Active Substance: SIMVASTATIN
  7. COLECALCIFEROL [Concomitant]
     Active Substance: CHOLECALCIFEROL
  8. MINOXIDIL. [Concomitant]
     Active Substance: MINOXIDIL
  9. COUMADIN [Concomitant]
     Active Substance: WARFARIN SODIUM
  10. VELTASSA [Suspect]
     Active Substance: PATIROMER
     Indication: HYPERKALAEMIA
     Route: 048
     Dates: start: 20160426, end: 201607
  11. FOSRENOL [Concomitant]
     Active Substance: LANTHANUM CARBONATE
  12. SINGULAIR [Concomitant]
     Active Substance: MONTELUKAST SODIUM
  13. VELTASSA [Suspect]
     Active Substance: PATIROMER
     Route: 048
     Dates: start: 2016, end: 20161003
  14. RENA-VITE [Concomitant]
     Active Substance: ASCORBIC ACID\BIOTIN\CALCIUM PANTOTHENATE\CYANOCOBALAMIN\FOLIC ACID\NIACINAMIDE\PYRIDOXINE HYDROCHLORIDE\RIBOFLAVIN\THIAMINE MONONITRATE
  15. SENSIPAR [Concomitant]
     Active Substance: CINACALCET HYDROCHLORIDE
  16. ACETYLSALICYLIC ACID [Concomitant]
     Active Substance: ASPIRIN
  17. VELTASSA [Suspect]
     Active Substance: PATIROMER
     Route: 048
     Dates: start: 20160824, end: 2016
  18. VELTASSA [Suspect]
     Active Substance: PATIROMER
     Route: 048
     Dates: start: 20160608
  19. SENNA [Concomitant]
     Active Substance: SENNA LEAF\SENNOSIDES\SENNOSIDES A AND B

REACTIONS (2)
  - Hospitalisation [Unknown]
  - Death [Fatal]

NARRATIVE: CASE EVENT DATE: 20160701
